FAERS Safety Report 5948328-8 (Version None)
Quarter: 2008Q4

REPORT INFORMATION
  Report Type: 
  Country: None (occurrence: None)
  Receive Date: 20081110
  Receipt Date: 20081110
  Transmission Date: 20090506
  Serious: Yes (Life-Threatening, Hospitalization, Other)
  Sender: FDA-Public Use
  Company Number: None

PATIENT
  Sex: Female
  Weight: 88.4514 kg

DRUGS (2)
  1. PAXIL [Suspect]
     Indication: ANXIETY
     Dates: start: 19930915, end: 19940420
  2. PAXIL [Suspect]
     Indication: DEPRESSION
     Dates: start: 19930915, end: 19940420

REACTIONS (5)
  - ACNE [None]
  - PAIN [None]
  - SCAR [None]
  - SKIN DISCOLOURATION [None]
  - SUICIDE ATTEMPT [None]
